FAERS Safety Report 24362930 (Version 1)
Quarter: 2024Q3

REPORT INFORMATION
  Report Type: Spontaneous
  Country: US (occurrence: None)
  Receive Date: 20240925
  Receipt Date: 20240925
  Transmission Date: 20241016
  Serious: Yes (Other)
  Sender: Public
  Company Number: None

PATIENT
  Age: 76 Year
  Sex: Male

DRUGS (1)
  1. LUMAKRAS [Suspect]
     Active Substance: SOTORASIB
     Dates: start: 20240729, end: 20240924

REACTIONS (4)
  - Confusional state [None]
  - Drug intolerance [None]
  - Therapy cessation [None]
  - Colitis [None]

NARRATIVE: CASE EVENT DATE: 20240924
